FAERS Safety Report 9425911 (Version 2)
Quarter: 2013Q3

REPORT INFORMATION
  Report Type: Spontaneous
  Country: TR (occurrence: TR)
  Receive Date: 20130729
  Receipt Date: 20130918
  Transmission Date: 20140515
  Serious: Yes (Hospitalization)
  Sender: FDA-Public Use
  Company Number: TR-ALEXION PHARMACEUTICALS INC.-A201301681

PATIENT
  Age: 65 Year
  Sex: Male

DRUGS (5)
  1. SOLIRIS 300MG [Suspect]
     Indication: PAROXYSMAL NOCTURNAL HAEMOGLOBINURIA
     Dosage: UNK
     Route: 042
  2. DILTIAZEM HCL [Concomitant]
     Indication: CARDIAC FAILURE CONGESTIVE
     Dosage: 30 MG, TID
     Dates: start: 20130315
  3. ALDACTONE [Concomitant]
     Indication: HEPATIC CIRRHOSIS
     Dosage: 50 MG, QD
     Dates: start: 20130515
  4. PANTOPRAZOLE [Concomitant]
     Indication: GASTRITIS
     Dosage: 40 MG, QD
     Dates: start: 20090112
  5. HEPATAMINE 8% [Concomitant]
     Indication: HEPATIC CIRRHOSIS
     Dosage: 500 ML, QD
     Dates: start: 20130512, end: 20130701

REACTIONS (1)
  - Hepatic encephalopathy [Recovered/Resolved]
